FAERS Safety Report 4848827-6 (Version None)
Quarter: 2005Q4

REPORT INFORMATION
  Report Type: 
  Country: None (occurrence: None)
  Receive Date: 20051115
  Receipt Date: 20050923
  Transmission Date: 20060501
  Serious: Yes (Hospitalization)
  Sender: FDA-Public Use
  Company Number: 398586

PATIENT
  Age: 47 Year
  Sex: Male
  Weight: 90.3 kg

DRUGS (2)
  1. PEGASYS [Suspect]
     Indication: HEPATITIS C
     Dosage: SUBCUTANEOUS
     Route: 058
     Dates: start: 20050128
  2. COPEGUS [Suspect]
     Indication: HEPATITIS C
     Dosage: ORAL
     Route: 048
     Dates: start: 20050128

REACTIONS (10)
  - DRY MOUTH [None]
  - DRY SKIN [None]
  - HAEMOGLOBIN DECREASED [None]
  - INFECTION [None]
  - INFLUENZA LIKE ILLNESS [None]
  - IRRITABILITY [None]
  - NAUSEA [None]
  - PRURITUS [None]
  - RED BLOOD CELL COUNT DECREASED [None]
  - VISION BLURRED [None]
